FAERS Safety Report 6354285-5 (Version None)
Quarter: 2009Q3

REPORT INFORMATION
  Report Type: 
  Country: None (occurrence: None)
  Receive Date: 20090914
  Receipt Date: 20090908
  Transmission Date: 20100115
  Serious: Yes (Hospitalization, Other)
  Sender: FDA-Public Use
  Company Number: PHHY2009IL38328

PATIENT
  Age: 50 Year
  Sex: Female

DRUGS (1)
  1. SANDOSTATIN LAR [Suspect]
     Indication: NEUROENDOCRINE TUMOUR
     Dosage: 30 MG, EVERY 28 DAYS

REACTIONS (4)
  - HOT FLUSH [None]
  - HYPERHIDROSIS [None]
  - HYPOGLYCAEMIA [None]
  - SYNCOPE [None]
